FAERS Safety Report 8909655 (Version 1)
Quarter: 2012Q4

REPORT INFORMATION
  Report Type: Report from Study
  Country: JP (occurrence: JP)
  Receive Date: 20121115
  Receipt Date: 20121115
  Transmission Date: 20130627
  Serious: Yes (Death)
  Sender: FDA-Public Use
  Company Number: JP-PFIZER INC-2012265651

PATIENT
  Age: 77 Year
  Sex: Female
  Weight: 38.8 kg

DRUGS (7)
  1. REVATIO [Suspect]
     Indication: IDIOPATHIC PULMONARY ARTERIAL HYPERTENSION
     Dosage: 20 mg, 1x/day
     Route: 048
     Dates: start: 20090721, end: 20090817
  2. REVATIO [Suspect]
     Dosage: 20 mg, 3x/day
     Route: 048
     Dates: start: 20090818, end: 20120412
  3. PROCYLIN [Concomitant]
     Indication: IDIOPATHIC PULMONARY ARTERIAL HYPERTENSION
     Dosage: UNK
     Route: 048
     Dates: start: 19981016, end: 20120412
  4. TRACLEER [Concomitant]
     Indication: IDIOPATHIC PULMONARY ARTERIAL HYPERTENSION
     Dosage: UNK
     Route: 048
     Dates: start: 20070122, end: 20120412
  5. DIGOXIN [Concomitant]
     Indication: IDIOPATHIC PULMONARY ARTERIAL HYPERTENSION
     Dosage: UNK
     Route: 048
     Dates: end: 20120412
  6. GASTER [Concomitant]
     Indication: GASTRITIS
     Dosage: UNK
     Route: 048
     Dates: start: 20120317, end: 20120412
  7. ALEVIATIN [Concomitant]
     Indication: EPILEPSY
     Dosage: UNK
     Route: 048
     Dates: start: 20120128, end: 20120412

REACTIONS (1)
  - Brain abscess [Fatal]
